FAERS Safety Report 5811235-5 (Version None)
Quarter: 2008Q3

REPORT INFORMATION
  Report Type: 
  Country: None (occurrence: None)
  Receive Date: 20080716
  Receipt Date: 20080707
  Transmission Date: 20090109
  Serious: Yes (Other)
  Sender: FDA-Public Use
  Company Number: US-ROCHE-572581

PATIENT
  Sex: Male
  Weight: 81.6 kg

DRUGS (4)
  1. ISOTRETINOIN [Suspect]
     Indication: ACNE
     Dosage: THE PATIENT WAS DISPENSED ACCUTANE 40 MG CAPSULE ON 2 APR 2008
     Route: 065
     Dates: start: 20080402
  2. ISOTRETINOIN [Suspect]
     Dosage: THE PATIENT WAS DISPENSED 40 MG ACCUTANE ON 11 JUNE 2008.
     Route: 065
     Dates: start: 20080611
  3. CLARAVIS [Suspect]
     Indication: ACNE
     Dosage: THE PATIENT WAS DISPENSED CLARAVIS 40 MG CAPS ON 3 APR 2008 AND 30 MG CAPS ON 6 MAY 2008.
     Route: 065
  4. SOTRET [Suspect]
     Indication: ACNE
     Dosage: THE PATIENT WAS DISPENSED 30 MG SOTRET FOR ONE MONTH.
     Route: 065

REACTIONS (3)
  - ANGER [None]
  - DEPRESSION [None]
  - SUICIDAL IDEATION [None]
